FAERS Safety Report 4657810-5 (Version None)
Quarter: 2005Q2

REPORT INFORMATION
  Report Type: 
  Country: None (occurrence: None)
  Receive Date: 20050510
  Receipt Date: 20050502
  Transmission Date: 20051028
  Serious: Yes (Other)
  Sender: FDA-Public Use
  Company Number: CA-MERCK-0505CAN00017

PATIENT
  Age: 67 Year
  Sex: Male

DRUGS (4)
  1. VIOXX [Suspect]
     Indication: ILL-DEFINED DISORDER
     Route: 048
  2. ATORVASTATIN CALCIUM [Suspect]
     Indication: ILL-DEFINED DISORDER
     Route: 065
  3. IBUPROFEN [Concomitant]
     Route: 065
  4. ACETAMINOPHEN [Concomitant]
     Route: 065

REACTIONS (16)
  - ANOREXIA [None]
  - ARTHRALGIA [None]
  - ASCITES [None]
  - CHROMATURIA [None]
  - COAGULOPATHY [None]
  - COGNITIVE DISORDER [None]
  - FATIGUE [None]
  - HEPATIC FAILURE [None]
  - HEPATITIS [None]
  - JAUNDICE [None]
  - MUSCLE ATROPHY [None]
  - NAUSEA [None]
  - PRURITUS [None]
  - RENAL FAILURE [None]
  - SLEEP DISORDER [None]
  - VARICES OESOPHAGEAL [None]
